FAERS Safety Report 19744423 (Version 7)
Quarter: 2024Q4

REPORT INFORMATION
  Report Type: Spontaneous
  Country: US (occurrence: US)
  Receive Date: 20210825
  Receipt Date: 20241021
  Transmission Date: 20250115
  Serious: Yes (Other)
  Sender: PFIZER
  Company Number: US-PFIZER INC-2021832001

PATIENT
  Age: 73 Year
  Sex: Female

DRUGS (4)
  1. XELJANZ [Suspect]
     Active Substance: TOFACITINIB CITRATE
     Dosage: 10 MG
     Route: 048
     Dates: start: 20210601
  2. XELJANZ [Suspect]
     Active Substance: TOFACITINIB CITRATE
     Dosage: 10 MG
     Route: 048
     Dates: start: 20210617
  3. XELJANZ [Suspect]
     Active Substance: TOFACITINIB CITRATE
     Dosage: 10 MG
     Route: 048
     Dates: start: 20210623
  4. PREDNISONE [Concomitant]
     Active Substance: PREDNISONE
     Dosage: UNK

REACTIONS (18)
  - Colitis ulcerative [Unknown]
  - Upper limb fracture [Unknown]
  - Fatigue [Unknown]
  - Nausea [Unknown]
  - Rosacea [Unknown]
  - Myalgia [Unknown]
  - Chills [Unknown]
  - Alopecia [Unknown]
  - Influenza like illness [Unknown]
  - Erythema [Unknown]
  - Eye swelling [Unknown]
  - Fluid retention [Unknown]
  - Diarrhoea [Unknown]
  - Asthenia [Unknown]
  - Loss of personal independence in daily activities [Unknown]
  - Fungal infection [Unknown]
  - Drainage [Unknown]
  - Impaired driving ability [Unknown]

NARRATIVE: CASE EVENT DATE: 20210101
